FAERS Safety Report 8876261 (Version 1)
Quarter: 2012Q4

REPORT INFORMATION
  Report Type: 
  Country: FR (occurrence: FR)
  Receive Date: 20121031
  Receipt Date: 20121031
  Transmission Date: 20130627
  Serious: Yes (Other)
  Sender: FDA-Public Use
  Company Number: FR-009507513-1110FRA00094

PATIENT
  Age: 33 Year
  Sex: Female

DRUGS (7)
  1. ISENTRESS [Suspect]
     Indication: HIV INFECTION
     Dosage: 400 mg, bid
     Route: 048
     Dates: start: 2010, end: 20110921
  2. ISENTRESS [Suspect]
     Dosage: 400 mg, bid
     Route: 048
     Dates: start: 20120201, end: 20120221
  3. TRUVADA [Concomitant]
     Indication: HIV INFECTION
     Dosage: UNK
     Route: 048
     Dates: start: 2009, end: 20110921
  4. TRUVADA [Concomitant]
     Dosage: UNK
     Dates: start: 20120201
  5. SEROPLEX [Concomitant]
     Indication: HIV INFECTION
     Dosage: UNK
     Route: 048
     Dates: start: 20110509, end: 20111108
  6. TERCIAN [Concomitant]
     Route: 048
  7. APROVEL [Concomitant]
     Dates: start: 20110629

REACTIONS (1)
  - Pancreatic disorder [Recovering/Resolving]
